FAERS Safety Report 4422670-4 (Version None)
Quarter: 2004Q3

REPORT INFORMATION
  Report Type: 
  Country: None (occurrence: None)
  Receive Date: 20040713
  Receipt Date: 20030402
  Transmission Date: 20050211
  Serious: No
  Sender: FDA-Public Use
  Company Number: PHEH2003US02789

PATIENT
  Age: 41 Year
  Sex: Female

DRUGS (3)
  1. ELIDEL [Suspect]
     Indication: ECZEMA
     Dosage: PRN, TOPICAL
     Route: 061
     Dates: start: 20030201
  2. ESTROGEN NOS (ESTROGEN NOS) [Concomitant]
  3. CALCIUM [Concomitant]

REACTIONS (2)
  - DRY SKIN [None]
  - SKIN FISSURES [None]
